FAERS Safety Report 9858140 (Version 1)
Quarter: 2014Q1

REPORT INFORMATION
  Report Type: Spontaneous
  Country: US (occurrence: None)
  Receive Date: 20140129
  Receipt Date: 20140129
  Transmission Date: 20141002
  Serious: Yes (Life-Threatening, Hospitalization)
  Sender: FDA-Public Use
  Company Number: None

PATIENT
  Age: 43 Year
  Sex: Female
  Weight: 90.9 kg

DRUGS (2)
  1. LISINOPRIL [Suspect]
     Indication: HYPERTENSION
     Dosage: 10 MG DAILY BY MOUTH
     Route: 048
  2. VITAMINS [Concomitant]

REACTIONS (5)
  - Local swelling [None]
  - Dyspnoea [None]
  - Angioedema [None]
  - Oedema [None]
  - Secretion discharge [None]
